FAERS Safety Report 5281508-6 (Version None)
Quarter: 2007Q1

REPORT INFORMATION
  Report Type: 
  Country: None (occurrence: None)
  Receive Date: 20070323
  Receipt Date: 20070323
  Transmission Date: 20070707
  Serious: Yes (Hospitalization)
  Sender: FDA-Public Use
  Company Number: None

PATIENT
  Sex: Male
  Weight: 87 kg

DRUGS (3)
  1. FLUOROURACIL [Suspect]
     Dosage: 410 MG
  2. CISPLATIN [Suspect]
     Dosage: 102 MG
  3. EPIRUBICIN [Suspect]
     Dosage: 82 MG

REACTIONS (1)
  - PNEUMONIA [None]
